FAERS Safety Report 7150083-3 (Version None)
Quarter: 2010Q4

REPORT INFORMATION
  Report Type: 
  Country: None (occurrence: None)
  Receive Date: 20101210
  Receipt Date: 20101129
  Transmission Date: 20110411
  Serious: Yes (Other)
  Sender: FDA-Public Use
  Company Number: US-ELI_LILLY_AND_COMPANY-US201011000757

PATIENT
  Age: 60 Year
  Sex: Male

DRUGS (3)
  1. CYMBALTA [Suspect]
     Indication: MAJOR DEPRESSION
     Dosage: 120 MG, DAILY (1/D)
  2. CYMBALTA [Suspect]
     Dosage: 180 MG, DAILY (1/D)
  3. WELLBUTRIN [Concomitant]
     Dosage: 150 MG, 2/D

REACTIONS (6)
  - DEPRESSED MOOD [None]
  - DRUG INEFFECTIVE [None]
  - GASTROINTESTINAL HYPERMOTILITY [None]
  - ILEOSTOMY [None]
  - MALABSORPTION [None]
  - OVERDOSE [None]
